FAERS Safety Report 6427066-1 (Version None)
Quarter: 2009Q4

REPORT INFORMATION
  Report Type: 
  Country: None (occurrence: None)
  Receive Date: 20091103
  Receipt Date: 20091103
  Transmission Date: 20100525
  Serious: No
  Sender: FDA-Public Use
  Company Number: None

PATIENT
  Sex: Male
  Weight: 74.8435 kg

DRUGS (2)
  1. PEGASYS [Suspect]
     Indication: HEPATITIS C
     Dosage: 180 MCG/0.5.ML  ONCE Q WEEK SQ
     Route: 058
     Dates: start: 20090731, end: 20090914
  2. RIBAVIRIN [Suspect]
     Indication: HEPATITIS C
     Dosage: 600 MG BID PO
     Route: 048
     Dates: start: 20090731, end: 20090914

REACTIONS (6)
  - ARTHRITIS [None]
  - BLOOD BLISTER [None]
  - FUNGAL INFECTION [None]
  - ONYCHOMADESIS [None]
  - PSORIASIS [None]
  - STAPHYLOCOCCAL INFECTION [None]
